FAERS Safety Report 19332868 (Version 1)
Quarter: 2021Q2

REPORT INFORMATION
  Report Type: Report from Study
  Country: HN (occurrence: HN)
  Receive Date: 20210529
  Receipt Date: 20210529
  Transmission Date: 20210717
  Serious: Yes (Other)
  Sender: FDA-Public Use
  Company Number: NVSC2021HN114775

PATIENT
  Age: 68 Year
  Sex: Female

DRUGS (1)
  1. EXFORGE [Suspect]
     Active Substance: AMLODIPINE BESYLATE\VALSARTAN
     Indication: PRODUCT USED FOR UNKNOWN INDICATION
     Dosage: 10/320 MG
     Route: 065
     Dates: start: 20210517

REACTIONS (4)
  - Movement disorder [Unknown]
  - General physical health deterioration [Unknown]
  - Drug ineffective [Unknown]
  - Cerebrovascular accident [Unknown]
